FAERS Safety Report 10240068 (Version 2)
Quarter: 2014Q2

REPORT INFORMATION
  Report Type: Spontaneous
  Country: US (occurrence: US)
  Receive Date: 20140617
  Receipt Date: 20140617
  Transmission Date: 20141212
  Serious: No
  Sender: FDA-Public Use
  Company Number: 2014SP002116

PATIENT
  Age: 85 Year
  Sex: Male
  Weight: 92.53 kg

DRUGS (2)
  1. DOXYCYCLINE [Suspect]
     Indication: SINUSITIS
  2. AMOXICILLIN [Suspect]
     Indication: SINUSITIS

REACTIONS (1)
  - Drug ineffective [Unknown]
